FAERS Safety Report 16113468 (Version 1)
Quarter: 2019Q1

REPORT INFORMATION
  Report Type: Spontaneous
  Country: US (occurrence: US)
  Receive Date: 20190325
  Receipt Date: 20190325
  Transmission Date: 20190418
  Serious: No
  Sender: FDA-Public Use
  Company Number: US-PFIZER INC-2019126494

PATIENT
  Age: 77 Year
  Sex: Female

DRUGS (16)
  1. GENTAMICIN SULFATE. [Suspect]
     Active Substance: GENTAMICIN SULFATE
     Dosage: UNK
  2. CIPROFLOXACIN. [Suspect]
     Active Substance: CIPROFLOXACIN
     Dosage: UNK
  3. CARTEOLOL [Suspect]
     Active Substance: CARTEOLOL
     Dosage: UNK
  4. THIMEROSAL [Suspect]
     Active Substance: THIMEROSAL
     Dosage: UNK
  5. TIXOCORTOL [Suspect]
     Active Substance: TIXOCORTOL PIVALATE
     Dosage: UNK
  6. HYDROCORTISONE. [Suspect]
     Active Substance: HYDROCORTISONE
     Dosage: UNK
  7. BENZALKONIUM CHLORIDE. [Suspect]
     Active Substance: BENZALKONIUM CHLORIDE
     Dosage: UNK
  8. SILVER SULFADIAZENE [Suspect]
     Active Substance: SILVER SULFADIAZINE
     Dosage: UNK
  9. BACITRACIN. [Suspect]
     Active Substance: BACITRACIN
     Dosage: UNK
  10. POLYMYXIN B. [Suspect]
     Active Substance: POLYMYXIN B
     Dosage: UNK
  11. TETANUS [Suspect]
     Active Substance: TETANUS ANTITOXIN
     Dosage: UNK
  12. NEOMYCIN SULFATE. [Suspect]
     Active Substance: NEOMYCIN SULFATE
     Dosage: UNK
  13. TOBRAMYCIN. [Suspect]
     Active Substance: TOBRAMYCIN
     Dosage: UNK
  14. IODINE. [Suspect]
     Active Substance: IODINE
     Dosage: UNK
  15. OXYMETAZOLINE [Suspect]
     Active Substance: OXYMETAZOLINE
     Dosage: UNK
  16. COLISTIMETHATE SODIUM. [Suspect]
     Active Substance: COLISTIMETHATE SODIUM
     Dosage: UNK

REACTIONS (1)
  - Drug hypersensitivity [Unknown]
